FAERS Safety Report 8514273 (Version 3)
Quarter: 2012Q4

REPORT INFORMATION
  Report Type: 
  Country: CA (occurrence: CA)
  Receive Date: 20120416
  Receipt Date: 20121221
  Transmission Date: 20130627
  Serious: Yes (Hospitalization, Other)
  Sender: FDA-Public Use
  Company Number: PHHY2010CA78960

PATIENT
  Age: 74 Year
  Sex: Female

DRUGS (5)
  1. SANDOSTATIN LAR [Suspect]
     Indication: NEUROENDOCRINE TUMOUR
     Dosage: 30 mg, Once a month
     Route: 030
     Dates: start: 20101018
  2. ANTIHYPERTENSIVE DRUGS [Concomitant]
  3. NORVASC [Concomitant]
     Dosage: 5 mg, UNK
  4. ATACAND [Concomitant]
     Dosage: 16 mg, UNK
  5. ATACAND [Concomitant]
     Dosage: 12.5 mg, QD
     Route: 048

REACTIONS (6)
  - Balance disorder [Unknown]
  - Dizziness [Unknown]
  - Neoplasm [Unknown]
  - Blood pressure diastolic increased [Unknown]
  - Labile hypertension [Unknown]
  - Anxiety [Not Recovered/Not Resolved]
